FAERS Safety Report 24667359 (Version 2)
Quarter: 2024Q4

REPORT INFORMATION
  Report Type: Spontaneous
  Country: CN (occurrence: CN)
  Receive Date: 20241126
  Receipt Date: 20241206
  Transmission Date: 20250115
  Serious: Yes (Hospitalization, Other)
  Sender: NOVARTIS
  Company Number: CN-002147023-NVSC2024CN225778

PATIENT
  Age: 80 Year
  Sex: Female

DRUGS (1)
  1. BROLUCIZUMAB [Suspect]
     Active Substance: BROLUCIZUMAB
     Indication: Neovascular age-related macular degeneration
     Dosage: 6 MG
     Route: 047
     Dates: start: 20241011, end: 20241114

REACTIONS (2)
  - Retinal artery occlusion [Recovering/Resolving]
  - Macular oedema [Unknown]

NARRATIVE: CASE EVENT DATE: 20241109
